FAERS Safety Report 4439731-6 (Version None)
Quarter: 2004Q3

REPORT INFORMATION
  Report Type: 
  Country: None (occurrence: None)
  Receive Date: 20040901
  Receipt Date: 20040901
  Transmission Date: 20050211
  Serious: Yes (Life-Threatening, Hospitalization)
  Sender: FDA-Public Use
  Company Number: None

PATIENT
  Sex: Male
  Weight: 74.8435 kg

DRUGS (1)
  1. SOTALOL HCL [Suspect]
     Indication: VENTRICULAR TACHYCARDIA
     Dosage: 80 MG TWICE DAIL ORAL
     Route: 048
     Dates: start: 19980101, end: 20040831

REACTIONS (3)
  - DRUG INEFFECTIVE [None]
  - PHARMACEUTICAL PRODUCT COMPLAINT [None]
  - VENTRICULAR TACHYCARDIA [None]
